FAERS Safety Report 7647186-3 (Version None)
Quarter: 2011Q3

REPORT INFORMATION
  Report Type: 
  Country: None (occurrence: None)
  Receive Date: 20110801
  Receipt Date: 20110727
  Transmission Date: 20111222
  Serious: Yes (Other)
  Sender: FDA-Public Use
  Company Number: US-SANOFI-AVENTIS-2011SA048491

PATIENT
  Age: 77 Year
  Sex: Female

DRUGS (3)
  1. MULTAQ [Suspect]
     Route: 048
     Dates: end: 20110101
  2. ANTIHYPERTENSIVES [Suspect]
     Indication: BLOOD PRESSURE
     Route: 065
  3. MULTAQ [Suspect]
     Indication: ATRIAL FIBRILLATION
     Route: 048
     Dates: start: 20100204

REACTIONS (2)
  - BRADYCARDIA [None]
  - HYPOTENSION [None]
